FAERS Safety Report 7586384-4 (Version None)
Quarter: 2011Q3

REPORT INFORMATION
  Report Type: 
  Country: None (occurrence: None)
  Receive Date: 20110701
  Receipt Date: 20110623
  Transmission Date: 20111222
  Serious: Yes (Other)
  Sender: FDA-Public Use
  Company Number: A0925582A

PATIENT
  Age: 55 Year
  Sex: Female

DRUGS (14)
  1. ACIPHEX [Concomitant]
  2. HERCEPTIN [Concomitant]
  3. VITAMIN TAB [Concomitant]
  4. XELODA [Suspect]
     Indication: BREAST CANCER
  5. UNSPECIFIED MEDICATION [Concomitant]
  6. UNSPECIFIED MEDICATION [Concomitant]
  7. LORAZEPAM [Concomitant]
  8. CALCIUM CARBONATE [Concomitant]
  9. SERTRALINE HYDROCHLORIDE [Concomitant]
  10. HYDROCODONE [Concomitant]
  11. MULTI-VITAMIN [Concomitant]
  12. NEXIUM [Concomitant]
  13. FISH OIL [Concomitant]
  14. TYKERB [Suspect]
     Indication: BREAST CANCER
     Dosage: 1250MG AT NIGHT
     Route: 048
     Dates: start: 20090101

REACTIONS (17)
  - RED BLOOD CELL COUNT DECREASED [None]
  - NAIL DISORDER [None]
  - WHEEZING [None]
  - DRUG INEFFECTIVE [None]
  - ONYCHOCLASIS [None]
  - NAIL INFECTION [None]
  - FATIGUE [None]
  - HYPERAESTHESIA [None]
  - RASH [None]
  - INGROWING NAIL [None]
  - DYSPNOEA [None]
  - CONSTIPATION [None]
  - PRURITUS [None]
  - ACNE [None]
  - ABDOMINAL PAIN UPPER [None]
  - PALMAR-PLANTAR ERYTHRODYSAESTHESIA SYNDROME [None]
  - DIARRHOEA [None]
